FAERS Safety Report 7385657-8 (Version None)
Quarter: 2011Q1

REPORT INFORMATION
  Report Type: 
  Country: None (occurrence: None)
  Receive Date: 20110331
  Receipt Date: 20110323
  Transmission Date: 20110831
  Serious: No
  Sender: FDA-Public Use
  Company Number: US-BIOGENIDEC-2011BI010941

PATIENT
  Age: 45 Year
  Sex: Female

DRUGS (1)
  1. AVONEX [Suspect]
     Indication: MULTIPLE SCLEROSIS
     Route: 030
     Dates: start: 20050617

REACTIONS (5)
  - MUSCLE TWITCHING [None]
  - PARAESTHESIA [None]
  - COLITIS [None]
  - HYPOAESTHESIA [None]
  - BALANCE DISORDER [None]
